FAERS Safety Report 6945227-X (Version None)
Quarter: 2010Q3

REPORT INFORMATION
  Report Type: 
  Country: None (occurrence: None)
  Receive Date: 20100827
  Receipt Date: 20100529
  Transmission Date: 20110219
  Serious: No
  Sender: FDA-Public Use
  Company Number: US-KINGPHARMUSA00001-K201000691

PATIENT
  Sex: Female
  Weight: 54.422 kg

DRUGS (1)
  1. FLECTOR [Suspect]
     Indication: MUSCLE STRAIN
     Dosage: 1 PATCH, Q12 HOURS
     Route: 061
     Dates: start: 20100526, end: 20100527

REACTIONS (2)
  - DRUG INEFFECTIVE [None]
  - PAIN [None]
